FAERS Safety Report 7391611-2 (Version None)
Quarter: 2011Q2

REPORT INFORMATION
  Report Type: 
  Country: None (occurrence: None)
  Receive Date: 20110404
  Receipt Date: 20110308
  Transmission Date: 20111010
  Serious: No
  Sender: FDA-Public Use
  Company Number: US-B.I. PHARMACEUTICALS,INC./RIDGEFIELD-2011-BP-07400BP

PATIENT
  Age: 85 Year
  Sex: Male

DRUGS (7)
  1. AGGRENOX [Suspect]
     Indication: CEREBROVASCULAR ACCIDENT PROPHYLAXIS
     Route: 048
     Dates: start: 20110201
  2. SIMVASTATIN [Concomitant]
     Indication: BLOOD CHOLESTEROL INCREASED
  3. CARVEDILOL [Concomitant]
     Indication: HYPERTENSION
  4. FUROSEMIDE [Concomitant]
     Indication: DIURETIC THERAPY
  5. HYDRALAZINE HCL [Concomitant]
     Indication: HYPERTENSION
  6. ACETAMINOPHEN [Concomitant]
     Indication: CHEST PAIN
  7. ISOSORBIDE DINITRATE [Concomitant]
     Indication: HYPERTENSION

REACTIONS (1)
  - TOOTH DISORDER [None]
